FAERS Safety Report 19249730 (Version 2)
Quarter: 2023Q2

REPORT INFORMATION
  Report Type: Spontaneous
  Country: US (occurrence: US)
  Receive Date: 20210512
  Receipt Date: 20230530
  Transmission Date: 20230722
  Serious: No
  Sender: FDA-Public Use
  Company Number: US-UCBSA-2020047394

PATIENT
  Sex: Female

DRUGS (4)
  1. CIMZIA [Suspect]
     Active Substance: CERTOLIZUMAB PEGOL
     Indication: Ankylosing spondylitis
     Dosage: UNK
  2. CIMZIA [Suspect]
     Active Substance: CERTOLIZUMAB PEGOL
     Indication: Uveitis
  3. HUMIRA [Suspect]
     Active Substance: ADALIMUMAB
     Indication: Ankylosing spondylitis
     Dosage: 40 MILLIGRAM  1 IN -2
     Route: 058
     Dates: start: 20200924
  4. HUMIRA [Suspect]
     Active Substance: ADALIMUMAB
     Indication: Uveitis

REACTIONS (6)
  - Mobility decreased [Unknown]
  - Loss of personal independence in daily activities [Unknown]
  - Uveitis [Unknown]
  - Ankylosing spondylitis [Unknown]
  - Injection site bruising [Recovered/Resolved]
  - Product use in unapproved indication [Unknown]

NARRATIVE: CASE EVENT DATE: 20200101
